FAERS Safety Report 7269922-0 (Version None)
Quarter: 2011Q1

REPORT INFORMATION
  Report Type: 
  Country: None (occurrence: None)
  Receive Date: 20110125
  Receipt Date: 20110117
  Transmission Date: 20110831
  Serious: Yes (Hospitalization)
  Sender: FDA-Public Use
  Company Number: WAES 1012USA03436

PATIENT
  Age: 65 Year
  Sex: Female

DRUGS (11)
  1. NOVALGIN [Concomitant]
  2. FRAZODI [Concomitant]
  3. BLOOD CELLS, RED [Concomitant]
  4. MAGNESIUM (UNSPECIFIED) [Concomitant]
  5. DECADRON [Suspect]
     Indication: MULTIPLE MYELOMA
     Dosage: 10MG/ML[2]; 20 MG
     Route: 048
     Dates: start: 20100503, end: 20101214
  6. DECADRON [Suspect]
     Indication: MULTIPLE MYELOMA
     Dosage: 10MG/ML[2]; 20 MG
     Route: 048
     Dates: start: 20110103
  7. CAP VORINOSTAT [Suspect]
     Dosage: 300 MG/DAILY
     Route: 048
     Dates: start: 20100201, end: 20101226
  8. CAP VORINOSTAT [Suspect]
     Dosage: 300 MG/DAILY
     Route: 048
     Dates: start: 20110103
  9. INFUSION (FORM) BORTEZMIB [Suspect]
     Dosage: 1.75 MG/DAILY; 1.0 MG/M[2]/DAILY
     Route: 042
     Dates: start: 20100201, end: 20101213
  10. INFUSION (FORM) BORTEZMIB [Suspect]
     Dosage: 1.75 MG/DAILY; 1.0 MG/M[2]/DAILY
     Route: 042
     Dates: start: 20110103
  11. CIPROFLOXACIN [Concomitant]

REACTIONS (1)
  - PNEUMONIA [None]
